FAERS Safety Report 13095787 (Version 1)
Quarter: 2017Q1

REPORT INFORMATION
  Report Type: Spontaneous
  Country: US (occurrence: US)
  Receive Date: 20170109
  Receipt Date: 20170109
  Transmission Date: 20170428
  Serious: Yes (Hospitalization, Other)
  Sender: FDA-Public Use
  Company Number: US-BAXTER-2016BAX063867

PATIENT
  Age: 69 Year
  Sex: Male
  Weight: 80.8 kg

DRUGS (20)
  1. BACTROBAN [Concomitant]
     Active Substance: MUPIROCIN\MUPIROCIN CALCIUM
     Indication: CATHETER SITE INFECTION
  2. LANTUS [Concomitant]
     Active Substance: INSULIN GLARGINE
     Indication: DIABETES MELLITUS
     Route: 058
     Dates: start: 20160815
  3. DIANEAL LOW CALCIUM PERITONEAL DIALYSIS SOLUTION WITH DEXTROSE [Suspect]
     Active Substance: CALCIUM CHLORIDE\DEXTROSE\MAGNESIUM CHLORIDE\SODIUM CHLORIDE\SODIUM LACTATE
     Indication: PERITONEAL DIALYSIS
     Route: 033
  4. ARANESP [Concomitant]
     Active Substance: DARBEPOETIN ALFA
     Indication: PRODUCT USED FOR UNKNOWN INDICATION
     Dosage: MICROGRAM/ML
     Route: 058
     Dates: start: 20161026
  5. FERROUS SULFATE. [Concomitant]
     Active Substance: FERROUS SULFATE
     Indication: IRON DEFICIENCY ANAEMIA
     Route: 048
     Dates: start: 20160815
  6. ISOSORBIDE. [Concomitant]
     Active Substance: ISOSORBIDE
     Indication: ANGINA PECTORIS
     Route: 048
     Dates: start: 20161121
  7. DELTASONE [Concomitant]
     Active Substance: PREDNISONE
     Dosage: DOSE REDUCED TO ACHIEVE LOWER WCC LEVEL
     Route: 048
     Dates: start: 20151208
  8. MAGNESIUM CHLORIDE. [Concomitant]
     Active Substance: MAGNESIUM CHLORIDE
     Indication: MINERAL SUPPLEMENTATION
     Route: 048
     Dates: start: 20160329
  9. BACTROBAN [Concomitant]
     Active Substance: MUPIROCIN\MUPIROCIN CALCIUM
     Indication: STAPHYLOCOCCAL INFECTION
     Dosage: 1 (UNITS UNKNOWN)
     Route: 061
     Dates: start: 20161118
  10. COREG [Concomitant]
     Active Substance: CARVEDILOL
     Indication: CARDIAC FAILURE
  11. DELTASONE [Concomitant]
     Active Substance: PREDNISONE
     Indication: PRODUCT USED FOR UNKNOWN INDICATION
     Route: 048
  12. HUMALOG [Concomitant]
     Active Substance: INSULIN LISPRO
     Indication: DIABETES MELLITUS
     Dosage: TAKES ONLY BEFORE EVENING MEAL
     Route: 058
     Dates: start: 20160614
  13. DIANEAL LOW CALCIUM PERITONEAL DIALYSIS SOLUTION WITH DEXTROSE [Suspect]
     Active Substance: CALCIUM CHLORIDE\DEXTROSE\MAGNESIUM CHLORIDE\SODIUM CHLORIDE\SODIUM LACTATE
     Indication: PERITONEAL DIALYSIS
     Route: 033
  14. FUROSEMIDE. [Concomitant]
     Active Substance: FUROSEMIDE
     Indication: FLUID RETENTION
     Dosage: 160MG IN AM AND 80MG IN PM
     Route: 048
     Dates: start: 20161121
  15. MULTIVITAMIN [Concomitant]
     Active Substance: VITAMINS
     Indication: PRODUCT USED FOR UNKNOWN INDICATION
     Route: 048
     Dates: start: 20161114
  16. COREG [Concomitant]
     Active Substance: CARVEDILOL
     Indication: HYPERTENSION
     Route: 048
     Dates: start: 20161121
  17. ASA [Concomitant]
     Active Substance: ASPIRIN
     Indication: ANTICOAGULANT THERAPY
     Route: 048
     Dates: start: 20120620
  18. RENVELA [Concomitant]
     Active Substance: SEVELAMER CARBONATE
     Indication: PRODUCT USED FOR UNKNOWN INDICATION
     Dosage: WITH MEALS
     Route: 048
     Dates: start: 20160815
  19. CRESTOR [Concomitant]
     Active Substance: ROSUVASTATIN CALCIUM
     Indication: BLOOD CHOLESTEROL INCREASED
     Route: 048
     Dates: start: 20120620
  20. FUROSEMIDE. [Concomitant]
     Active Substance: FUROSEMIDE
     Indication: SWELLING

REACTIONS (4)
  - Herpes zoster [Unknown]
  - Peritonitis [Recovering/Resolving]
  - Diverticular perforation [Unknown]
  - Diverticulitis [Unknown]

NARRATIVE: CASE EVENT DATE: 20161123
